FAERS Safety Report 17077327 (Version 2)
Quarter: 2019Q4

REPORT INFORMATION
  Report Type: Spontaneous
  Country: HU (occurrence: HU)
  Receive Date: 20191126
  Receipt Date: 20191128
  Transmission Date: 20200122
  Serious: Yes (Death, Other)
  Sender: FDA-Public Use
  Company Number: HU-AMGEN-HUNSP2019193631

PATIENT

DRUGS (2)
  1. DARATUMUMAB [Suspect]
     Active Substance: DARATUMUMAB
     Indication: PLASMA CELL MYELOMA
     Dosage: UNK
     Route: 065
     Dates: start: 201609, end: 201812
  2. CARFILZOMIB [Suspect]
     Active Substance: CARFILZOMIB
     Indication: PLASMA CELL MYELOMA
     Dosage: UNK
     Route: 065

REACTIONS (16)
  - Neutropenia [Unknown]
  - Renal impairment [Unknown]
  - Therapy partial responder [Unknown]
  - Gastrointestinal disorder [Unknown]
  - Sepsis [Fatal]
  - Thrombocytopenia [Unknown]
  - Haematotoxicity [Unknown]
  - Off label use [Unknown]
  - Death [Fatal]
  - Nervous system disorder [Unknown]
  - Plasma cell myeloma [Unknown]
  - Infusion related reaction [Unknown]
  - Pneumonia [Fatal]
  - Infection [Unknown]
  - Anaemia [Unknown]
  - Cardiovascular disorder [Unknown]
